FAERS Safety Report 8321464-7 (Version None)
Quarter: 2012Q2

REPORT INFORMATION
  Report Type: 
  Country: None (occurrence: None)
  Receive Date: 20120430
  Receipt Date: 20120430
  Transmission Date: 20120825
  Serious: No
  Sender: FDA-Public Use
  Company Number: None

PATIENT
  Sex: Female
  Weight: 85.275 kg

DRUGS (2)
  1. SAVELLA [Suspect]
     Indication: FIBROMYALGIA
     Dosage: 50.0 MG
     Route: 048
     Dates: start: 20120225, end: 20120423
  2. SAVELLA [Concomitant]

REACTIONS (5)
  - BLOOD PRESSURE INCREASED [None]
  - RECTAL HAEMORRHAGE [None]
  - GINGIVAL BLEEDING [None]
  - BLOOD URINE PRESENT [None]
  - HEART RATE INCREASED [None]
